FAERS Safety Report 20720848 (Version 1)
Quarter: 2022Q2

REPORT INFORMATION
  Report Type: Report from Study
  Country: US (occurrence: US)
  Receive Date: 20220418
  Receipt Date: 20220418
  Transmission Date: 20220721
  Serious: Yes (Other)
  Sender: FDA-Public Use
  Company Number: US-BAYER-2022A040482

PATIENT
  Age: 72 Year
  Sex: Male

DRUGS (2)
  1. STIVARGA [Suspect]
     Active Substance: REGORAFENIB
     Indication: Gastric cancer
     Dosage: 160 MG, QD
     Route: 048
     Dates: start: 20220312
  2. STIVARGA [Suspect]
     Active Substance: REGORAFENIB
     Indication: Gastric cancer
     Dosage: 120 MG, QD FOR 21 DAYS THAN OFF FOR 7 DAYS
     Route: 048

REACTIONS (8)
  - Chest pain [Recovered/Resolved]
  - Palpitations [Recovered/Resolved]
  - Dyspnoea [Recovered/Resolved]
  - Peripheral swelling [Recovered/Resolved]
  - Chest discomfort [Recovering/Resolving]
  - Rash [Recovered/Resolved]
  - Headache [Recovered/Resolved]
  - Dysphonia [Not Recovered/Not Resolved]

NARRATIVE: CASE EVENT DATE: 20220307
